FAERS Safety Report 8147271-6 (Version None)
Quarter: 2012Q1

REPORT INFORMATION
  Report Type: 
  Country: None (occurrence: None)
  Receive Date: 20120218
  Receipt Date: 20110131
  Transmission Date: 20120608
  Serious: No
  Sender: FDA-Public Use
  Company Number: US-ALLERGAN-1101366US

PATIENT
  Age: 56 Year
  Sex: Female

DRUGS (3)
  1. BOTULINUM TOXIN TYPE A [Suspect]
     Indication: BLEPHAROSPASM
     Dosage: 50 UNITS, SINGLE
     Route: 030
     Dates: start: 20101228, end: 20101228
  2. BOTULINUM TOXIN TYPE A [Suspect]
     Dosage: 100 UNITS, SINGLE
     Dates: start: 20091201, end: 20091201
  3. BOTULINUM TOXIN TYPE A [Suspect]
     Dosage: UNK
     Dates: start: 20101203, end: 20101203

REACTIONS (6)
  - PHOTOSENSITIVITY REACTION [None]
  - THERAPEUTIC RESPONSE DECREASED [None]
  - RESPIRATORY PARALYSIS [None]
  - PALPITATIONS [None]
  - FACIAL PARESIS [None]
  - EYELID PTOSIS [None]
